FAERS Safety Report 8539998-9 (Version None)
Quarter: 2012Q3

REPORT INFORMATION
  Report Type: 
  Country: None (occurrence: None)
  Receive Date: 20120726
  Receipt Date: 20120717
  Transmission Date: 20120928
  Serious: Yes (Congenital Anomaly)
  Sender: FDA-Public Use
  Company Number: US-ENDO PHARMACEUTICALS INC.-PREV20120010

PATIENT
  Sex: 0

DRUGS (1)
  1. PREVIFEM [Suspect]
     Indication: FOETAL EXPOSURE DURING PREGNANCY
     Dosage: UNKNOWN
     Route: 064

REACTIONS (2)
  - CONGENITAL HIP DEFORMITY [None]
  - FOETAL EXPOSURE DURING PREGNANCY [None]
